FAERS Safety Report 7916077-2 (Version None)
Quarter: 2011Q4

REPORT INFORMATION
  Report Type: 
  Country: None (occurrence: None)
  Receive Date: 20111115
  Receipt Date: 20111103
  Transmission Date: 20120403
  Serious: Yes (Hospitalization)
  Sender: FDA-Public Use
  Company Number: CA-ELI_LILLY_AND_COMPANY-CA201111001334

PATIENT
  Age: 85 Year
  Sex: Female

DRUGS (8)
  1. CARBOCAL D [Concomitant]
  2. FORTEO [Suspect]
     Indication: OSTEOPOROSIS
     Dosage: 20 UG, QD
     Route: 058
     Dates: start: 20091110, end: 20111001
  3. PANTOPRAZOLE [Concomitant]
  4. FOLIC ACID [Concomitant]
  5. ELAVIL [Concomitant]
  6. METHOTREXATE [Concomitant]
  7. DOM-ZOPICLONE [Concomitant]
  8. TYLENOL                                 /SCH/ [Concomitant]

REACTIONS (6)
  - OEDEMA MOUTH [None]
  - DYSPHAGIA [None]
  - PAIN [None]
  - ARTHRITIS [None]
  - RED BLOOD CELL COUNT DECREASED [None]
  - ASTHENIA [None]
